FAERS Safety Report 8222846-4 (Version None)
Quarter: 2012Q1

REPORT INFORMATION
  Report Type: 
  Country: None (occurrence: None)
  Receive Date: 20120320
  Receipt Date: 20120312
  Transmission Date: 20120608
  Serious: Yes (Hospitalization)
  Sender: FDA-Public Use
  Company Number: PHHO2012US004199

PATIENT
  Age: 53 Year
  Sex: Female
  Weight: 66.68 kg

DRUGS (2)
  1. ANASTROZOLE [Suspect]
  2. ZOLEDRONOC ACID [Suspect]
     Indication: BREAST CANCER
     Dosage: 4 MG
     Route: 042
     Dates: start: 20090408, end: 20110921

REACTIONS (1)
  - SMALL INTESTINAL OBSTRUCTION [None]
